FAERS Safety Report 5333699-6 (Version None)
Quarter: 2007Q2

REPORT INFORMATION
  Report Type: 
  Country: None (occurrence: None)
  Receive Date: 20070524
  Receipt Date: 20070518
  Transmission Date: 20071010
  Serious: Yes (Other)
  Sender: FDA-Public Use
  Company Number: B0468304A

PATIENT
  Age: 14 Year
  Sex: Female

DRUGS (5)
  1. RELENZA [Suspect]
     Indication: INFLUENZA
     Dosage: 10MG TWICE PER DAY
     Route: 055
     Dates: start: 20070309, end: 20070313
  2. ZITHROMAC [Concomitant]
     Dosage: 500MG PER DAY
     Route: 048
  3. HUSCODE [Concomitant]
     Route: 048
  4. MUCOTHIOL [Concomitant]
     Route: 048
  5. ALIMEZINE [Concomitant]
     Route: 048

REACTIONS (1)
  - HALLUCINATION [None]
